FAERS Safety Report 11057110 (Version 2)
Quarter: 2015Q2

REPORT INFORMATION
  Report Type: Spontaneous
  Country: ES (occurrence: ES)
  Receive Date: 20150422
  Receipt Date: 20150618
  Transmission Date: 20150821
  Serious: Yes (Death, Life-Threatening, Hospitalization, Other)
  Sender: FDA-Public Use
  Company Number: ES-GILEAD-2015-0149694

PATIENT
  Age: 46 Year
  Sex: Male

DRUGS (2)
  1. ENALAPRIL [Concomitant]
     Active Substance: ENALAPRIL
     Indication: HYPERTENSION
  2. HARVONI [Suspect]
     Active Substance: LEDIPASVIR\SOFOSBUVIR
     Indication: PRODUCT USED FOR UNKNOWN INDICATION
     Dosage: UNK UNKNOWN, UNK
     Route: 065
     Dates: start: 20150408

REACTIONS (6)
  - Coma [Unknown]
  - Craniocerebral injury [Unknown]
  - Fall [Unknown]
  - Cerebral haemorrhage [Unknown]
  - Death [Fatal]
  - Dizziness [Unknown]

NARRATIVE: CASE EVENT DATE: 2015
